FAERS Safety Report 16715957 (Version 1)
Quarter: 2019Q3

REPORT INFORMATION
  Report Type: Spontaneous
  Country: ES (occurrence: ES)
  Receive Date: 20190819
  Receipt Date: 20190819
  Transmission Date: 20191005
  Serious: Yes (Other)
  Sender: FDA-Public Use
  Company Number: ES-MYLANLABS-2019M1076501

PATIENT
  Age: 64 Year
  Sex: Female
  Weight: 102.3 kg

DRUGS (11)
  1. PROFER                             /01541301/ [Concomitant]
     Dosage: 40 MG, DAILY
  2. CANDESARTAN. [Concomitant]
     Active Substance: CANDESARTAN
     Dosage: 16 MG, DAILY
  3. NOVORAPID [Concomitant]
     Active Substance: INSULIN ASPART
     Dosage: 17 IU, 3X/DAY
  4. PRAVASTATIN. [Concomitant]
     Active Substance: PRAVASTATIN
     Dosage: 10 MG, DAILY
  5. EZETROL [Concomitant]
     Active Substance: EZETIMIBE
     Dosage: 10 MG, DAILY
  6. ALOPURINOL [Concomitant]
     Active Substance: ALLOPURINOL
     Dosage: 100 MG, DAILY
  7. LINEZOLID. [Suspect]
     Active Substance: LINEZOLID
     Indication: SOFT TISSUE INFECTION
     Dosage: 600 MG, 2X/DAY (EVERY 12 HOURS)
     Route: 048
     Dates: start: 20171220, end: 20180119
  8. OMEPRAZOL                          /00661201/ [Concomitant]
     Active Substance: OMEPRAZOLE
     Dosage: 20 MG, DAILY
  9. ADIRO [Concomitant]
     Active Substance: ASPIRIN
     Dosage: 100 MG, DAILY
  10. LANTUS [Concomitant]
     Active Substance: INSULIN GLARGINE
     Dosage: 30 IU, DAILY(EVERY 24 HOURS)
  11. LYRICA [Concomitant]
     Active Substance: PREGABALIN
     Dosage: 75 MG, 2X/DAY (EVERY 12 HOURS)

REACTIONS (5)
  - Anaemia [Unknown]
  - Haematotoxicity [Unknown]
  - Thrombocytopenia [Unknown]
  - Leukopenia [Unknown]
  - Drug ineffective [Unknown]
